FAERS Safety Report 17676182 (Version 1)
Quarter: 2020Q2

REPORT INFORMATION
  Report Type: Spontaneous
  Country: GB (occurrence: GB)
  Receive Date: 20200416
  Receipt Date: 20200416
  Transmission Date: 20200714
  Serious: Yes (Other)
  Sender: FDA-Public Use
  Company Number: GB-MYLANLABS-2020M1038800

PATIENT
  Age: 12 Year
  Sex: Male
  Weight: 54.88 kg

DRUGS (1)
  1. LANSOPRAZOLE MYLAN [Suspect]
     Active Substance: LANSOPRAZOLE
     Indication: GASTROOESOPHAGEAL REFLUX DISEASE
     Dosage: 30 MILLIGRAM, QD(IN MORNING)
     Route: 048
     Dates: start: 20200221

REACTIONS (3)
  - Regurgitation [Not Recovered/Not Resolved]
  - Pruritus [Not Recovered/Not Resolved]
  - Mood swings [Not Recovered/Not Resolved]

NARRATIVE: CASE EVENT DATE: 20200228
